FAERS Safety Report 8838750 (Version 1)
Quarter: 2012Q4

REPORT INFORMATION
  Report Type: 
  Country: US (occurrence: US)
  Receive Date: 20121012
  Receipt Date: 20121012
  Transmission Date: 20130627
  Serious: Yes (Hospitalization, Disabling, Other)
  Sender: FDA-Public Use
  Company Number: US-009507513-1205USA00984

PATIENT

DRUGS (5)
  1. FOSAMAX [Suspect]
     Route: 048
     Dates: start: 2007, end: 2010
  2. FOSAMAX PLUS D [Suspect]
     Route: 048
     Dates: start: 2007, end: 2010
  3. FOSAMAX [Suspect]
     Route: 048
     Dates: start: 2007, end: 2010
  4. ACTONEL [Suspect]
     Dosage: 35 mg, qw
     Route: 048
     Dates: start: 2007, end: 2010
  5. ALENDRONATE SODIUM [Suspect]
     Dosage: 35 mg, UNK

REACTIONS (37)
  - Femur fracture [Unknown]
  - Intramedullary rod insertion [Unknown]
  - Femur fracture [Unknown]
  - Femur fracture [Not Recovered/Not Resolved]
  - Renal failure chronic [Not Recovered/Not Resolved]
  - Myocardial infarction [Unknown]
  - Spinal fusion surgery [Unknown]
  - Spinal operation [Unknown]
  - Abdominal operation [Unknown]
  - Humerus fracture [Unknown]
  - Shoulder arthroplasty [Unknown]
  - Sciatica [Unknown]
  - Intervertebral disc protrusion [Unknown]
  - Meniscus injury [Unknown]
  - Fall [Unknown]
  - Rheumatoid arthritis [Unknown]
  - Bursitis [Unknown]
  - Hypothyroidism [Unknown]
  - Fibromyalgia [Unknown]
  - Hypoaesthesia [Unknown]
  - Hypertension [Unknown]
  - Anxiety [Unknown]
  - Spinal column stenosis [Unknown]
  - Osteoarthritis [Unknown]
  - Depression [Unknown]
  - Hypercholesterolaemia [Unknown]
  - Insomnia [Unknown]
  - Irritable bowel syndrome [Unknown]
  - Intervertebral disc disorder [Unknown]
  - Neuralgia [Unknown]
  - Joint dislocation [Unknown]
  - Hyperthyroidism [Unknown]
  - Spondylolisthesis [Unknown]
  - Gastric ulcer [Unknown]
  - Pain in extremity [Unknown]
  - Back pain [Not Recovered/Not Resolved]
  - Drug ineffective [Unknown]
